FAERS Safety Report 5335023-1 (Version None)
Quarter: 2007Q2

REPORT INFORMATION
  Report Type: 
  Country: None (occurrence: None)
  Receive Date: 20070525
  Receipt Date: 20070521
  Transmission Date: 20071010
  Serious: Yes (Death, Hospitalization)
  Sender: FDA-Public Use
  Company Number: US-SANOFI-SYNTHELABO-F01200700662

PATIENT
  Sex: Male

DRUGS (3)
  1. CAPECITABINE [Suspect]
     Dosage: DAYS 1-8 EVERY 14 DAYS
     Route: 048
     Dates: end: 20070331
  2. BEVACIZUMAB [Suspect]
     Route: 041
     Dates: start: 20070329, end: 20070329
  3. OXALIPLATIN [Suspect]
     Indication: COLORECTAL CANCER METASTATIC
     Route: 041
     Dates: start: 20070329, end: 20070329

REACTIONS (2)
  - MUCOSAL INFLAMMATION [None]
  - MULTI-ORGAN FAILURE [None]
